FAERS Safety Report 8835858 (Version 1)
Quarter: 2012Q4

REPORT INFORMATION
  Report Type: 
  Country: US (occurrence: US)
  Receive Date: 20121011
  Receipt Date: 20121011
  Transmission Date: 20130627
  Serious: No
  Sender: FDA-Public Use
  Company Number: US-PFIZER INC-2012250953

PATIENT
  Age: 3 Year
  Sex: Female
  Weight: 14.97 kg

DRUGS (1)
  1. CHILDRENS ADVIL [Suspect]
     Indication: NASOPHARYNGITIS
     Dosage: UNK
     Route: 048
     Dates: end: 201210

REACTIONS (8)
  - Rash [Recovered/Resolved]
  - Flushing [Recovered/Resolved]
  - Pruritus [Recovered/Resolved]
  - Headache [Recovered/Resolved]
  - Feeling hot [Recovered/Resolved]
  - Scratch [Recovered/Resolved]
  - Crying [Recovered/Resolved]
  - Product colour issue [Recovered/Resolved]
